FAERS Safety Report 4542774-5 (Version None)
Quarter: 2004Q4

REPORT INFORMATION
  Report Type: 
  Country: None (occurrence: None)
  Receive Date: 20041231
  Receipt Date: 20040824
  Transmission Date: 20050328
  Serious: Yes (Other)
  Sender: FDA-Public Use
  Company Number: 200416368US

PATIENT
  Age: 70 Year
  Sex: Male
  Weight: 85.9 kg

DRUGS (11)
  1. TAXOTERE [Suspect]
     Indication: PROSTATE CANCER METASTATIC
     Route: 042
     Dates: start: 20040517, end: 20040823
  2. PRAVACHOL [Concomitant]
     Dosage: DOSE: UNK
  3. ASPIRIN [Concomitant]
     Route: 048
  4. MV [Concomitant]
     Dosage: DOSE: UNK
  5. VIOXX [Concomitant]
  6. CASODEX [Concomitant]
     Indication: PROSTATIC SPECIFIC ANTIGEN INCREASED
     Dosage: DOSE: UNK
  7. KETOCONAZOLE [Concomitant]
     Dosage: DOSE: UNK
     Dates: start: 20040101
  8. DEXAMETHASONE [Concomitant]
     Indication: PREMEDICATION
     Route: 042
  9. KYTRIL [Concomitant]
     Indication: PREMEDICATION
     Route: 042
  10. BENADRYL /OLD FORM/ [Concomitant]
     Indication: PREMEDICATION
     Route: 042
  11. TAGAMET [Concomitant]
     Indication: PREMEDICATION
     Route: 042

REACTIONS (7)
  - CATARACT [None]
  - FEELING ABNORMAL [None]
  - RETINAL HAEMORRHAGE [None]
  - SCAR [None]
  - VISION BLURRED [None]
  - VISUAL DISTURBANCE [None]
  - VITREOUS FLOATERS [None]
